FAERS Safety Report 10954075 (Version 3)
Quarter: 2015Q2

REPORT INFORMATION
  Report Type: Spontaneous
  Country: GB (occurrence: GB)
  Receive Date: 20150325
  Receipt Date: 20150416
  Transmission Date: 20150821
  Serious: Yes (Other)
  Sender: FDA-Public Use
  Company Number: PHFR2015GB002084

PATIENT
  Age: 48 Year
  Sex: Female

DRUGS (1)
  1. CLOZARIL [Suspect]
     Active Substance: CLOZAPINE
     Indication: SCHIZOPHRENIA
     Dosage: UNK
     Route: 048
     Dates: start: 20120614

REACTIONS (9)
  - Weight decreased [Unknown]
  - White blood cell count decreased [Recovered/Resolved]
  - Neutrophil count decreased [Recovered/Resolved]
  - White blood cell count decreased [Recovered/Resolved]
  - Fluid intake reduced [Unknown]
  - Platelet count decreased [Unknown]
  - Post viral fatigue syndrome [Unknown]
  - Malnutrition [Unknown]
  - Urinary tract infection [Unknown]

NARRATIVE: CASE EVENT DATE: 20150304
